FAERS Safety Report 10254572 (Version 1)
Quarter: 2014Q2

REPORT INFORMATION
  Report Type: Spontaneous
  Country: US (occurrence: None)
  Receive Date: 20140620
  Receipt Date: 20140620
  Transmission Date: 20141212
  Serious: No
  Sender: FDA-Public Use
  Company Number: None

PATIENT
  Sex: 0

DRUGS (1)
  1. LISINOPRIL/HYDROCHLOROTHIAZIDE [Suspect]
     Dates: start: 20140619, end: 20140619

REACTIONS (3)
  - Product colour issue [None]
  - Product shape issue [None]
  - Intercepted drug dispensing error [None]
